FAERS Safety Report 15827875 (Version 1)
Quarter: 2019Q1

REPORT INFORMATION
  Report Type: Spontaneous
  Country: CA (occurrence: CA)
  Receive Date: 20190115
  Receipt Date: 20190115
  Transmission Date: 20190417
  Serious: Yes (Hospitalization)
  Sender: FDA-Public Use
  Company Number: CA-VALIDUS PHARMACEUTICALS LLC-CA-2019VAL000013

PATIENT
  Sex: Female

DRUGS (1)
  1. ROCALTROL [Suspect]
     Active Substance: CALCITRIOL
     Indication: PRODUCT USED FOR UNKNOWN INDICATION
     Dosage: UNK
     Route: 048

REACTIONS (9)
  - Myalgia [Unknown]
  - Pain in extremity [Unknown]
  - Bone pain [Unknown]
  - Abdominal pain [Unknown]
  - Photosensitivity reaction [Unknown]
  - Abdominal pain upper [Unknown]
  - Skin discolouration [Unknown]
  - Fatigue [Unknown]
  - Eye infection [Unknown]
